FAERS Safety Report 10556489 (Version 2)
Quarter: 2014Q4

REPORT INFORMATION
  Report Type: Spontaneous
  Country: US (occurrence: US)
  Receive Date: 20141031
  Receipt Date: 20141111
  Transmission Date: 20150529
  Serious: Yes (Other)
  Sender: FDA-Public Use
  Company Number: US-ASTRAZENECA-2014SE81489

PATIENT
  Age: 74 Year
  Sex: Male
  Weight: 81.6 kg

DRUGS (5)
  1. ZOLADEX [Suspect]
     Active Substance: GOSERELIN ACETATE
     Indication: PROSTATE CANCER
     Dosage: 3.6 MG EVERY 5 WEEKS
     Route: 058
  2. ZOLADEX [Suspect]
     Active Substance: GOSERELIN ACETATE
     Indication: PROSTATE CANCER
     Dosage: 3.6 MG EVERY 6 WEEKS
     Route: 058
     Dates: end: 20141031
  3. ZOLADEX [Suspect]
     Active Substance: GOSERELIN ACETATE
     Indication: PROSTATE CANCER
     Dosage: 3.6 MG EVERY 7 WEEKS
     Route: 058
  4. ZOLADEX [Suspect]
     Active Substance: GOSERELIN ACETATE
     Indication: PROSTATE CANCER
     Route: 058
     Dates: start: 2004
  5. ZOLADEX [Suspect]
     Active Substance: GOSERELIN ACETATE
     Indication: PROSTATE CANCER
     Dosage: 3.6 MG EVERY 6 WEEKS
     Route: 058
     Dates: end: 20141031

REACTIONS (8)
  - Type 2 diabetes mellitus [Not Recovered/Not Resolved]
  - Off label use [Recovered/Resolved]
  - Drug hypersensitivity [Unknown]
  - Blindness [Not Recovered/Not Resolved]
  - Hot flush [Unknown]
  - Malignant neoplasm progression [Unknown]
  - Malaise [Unknown]
  - Abdominal pain upper [Unknown]

NARRATIVE: CASE EVENT DATE: 2004
